FAERS Safety Report 7319464-9 (Version None)
Quarter: 2011Q1

REPORT INFORMATION
  Report Type: 
  Country: None (occurrence: None)
  Receive Date: 20110228
  Receipt Date: 20100525
  Transmission Date: 20110831
  Serious: No
  Sender: FDA-Public Use
  Company Number: A0853492A

PATIENT
  Age: 52 Year
  Sex: Female

DRUGS (6)
  1. LAMICTAL [Suspect]
     Indication: DEPRESSION
     Dosage: 100MG PER DAY
     Route: 048
     Dates: start: 20100105, end: 20100405
  2. PAXIL [Suspect]
     Indication: DEPRESSION
     Route: 048
  3. ZYBAN [Suspect]
     Route: 048
  4. NEURONTIN [Concomitant]
  5. CLONAZEPAM [Concomitant]
  6. CHOLESTYRAMINE [Concomitant]

REACTIONS (8)
  - LIP SWELLING [None]
  - DRY MOUTH [None]
  - COORDINATION ABNORMAL [None]
  - MUSCULAR WEAKNESS [None]
  - RASH [None]
  - BLISTER [None]
  - SPEECH DISORDER [None]
  - DEHYDRATION [None]
